FAERS Safety Report 13081360 (Version 1)
Quarter: 2017Q1

REPORT INFORMATION
  Report Type: Spontaneous
  Country: IN (occurrence: IN)
  Receive Date: 20170103
  Receipt Date: 20170103
  Transmission Date: 20170428
  Serious: Yes (Other)
  Sender: FDA-Public Use
  Company Number: IN-TELIGENT, INC-IGIL20160349

PATIENT
  Age: 40 Year
  Sex: Male

DRUGS (1)
  1. LIDOCAINE HYDROCHLORIDE TOPICAL SOLUTION, 4% [Suspect]
     Active Substance: LIDOCAINE HYDROCHLORIDE
     Indication: ANAESTHESIA
     Route: 047

REACTIONS (2)
  - Keratopathy [Recovered/Resolved]
  - Product use issue [None]
